FAERS Safety Report 13368653 (Version 1)
Quarter: 2017Q1

REPORT INFORMATION
  Report Type: Spontaneous
  Country: US (occurrence: US)
  Receive Date: 20170324
  Receipt Date: 20170324
  Transmission Date: 20170429
  Serious: No
  Sender: FDA-Public Use
  Company Number: US-PFIZER INC-2017126015

PATIENT

DRUGS (1)
  1. NEURONTIN [Suspect]
     Active Substance: GABAPENTIN
     Dosage: UNK

REACTIONS (6)
  - Vomiting [Unknown]
  - Musculoskeletal pain [Unknown]
  - Skin disorder [Unknown]
  - Feeling cold [Unknown]
  - Anaemia [Unknown]
  - Nausea [Unknown]
